FAERS Safety Report 20467470 (Version 4)
Quarter: 2022Q2

REPORT INFORMATION
  Report Type: Report from Study
  Country: US (occurrence: US)
  Receive Date: 20220214
  Receipt Date: 20220505
  Transmission Date: 20220720
  Serious: Yes (Other)
  Sender: FDA-Public Use
  Company Number: US-INSMED, INC.-2022-00056-US

PATIENT
  Age: 65 Year
  Sex: Female
  Weight: 67.12 kg

DRUGS (1)
  1. ARIKAYCE [Suspect]
     Active Substance: AMIKACIN
     Indication: Mycobacterium avium complex infection
     Dosage: 590 MILLIGRAM, QD
     Route: 055
     Dates: start: 20220111, end: 2022

REACTIONS (10)
  - Pulmonary oedema [Unknown]
  - Post-tussive vomiting [Recovered/Resolved]
  - Productive cough [Recovered/Resolved]
  - Throat irritation [Not Recovered/Not Resolved]
  - Aphonia [Unknown]
  - Vomiting [Unknown]
  - Cough [Recovered/Resolved]
  - Cough [Not Recovered/Not Resolved]
  - Oropharyngeal pain [Not Recovered/Not Resolved]
  - Dyspnoea [Unknown]

NARRATIVE: CASE EVENT DATE: 20220101
